FAERS Safety Report 26200227 (Version 1)
Quarter: 2025Q4

REPORT INFORMATION
  Report Type: Spontaneous
  Country: US (occurrence: US)
  Receive Date: 20251225
  Receipt Date: 20251225
  Transmission Date: 20260117
  Serious: Yes (Death, Life-Threatening, Hospitalization)
  Sender: AMGEN
  Company Number: US-AMGEN-USASP2025250577

PATIENT
  Age: 60 Year
  Sex: Male

DRUGS (8)
  1. PREDNISONE [Suspect]
     Active Substance: PREDNISONE
     Indication: Eosinophilic pneumonia acute
     Dosage: UNK, (SIX DAYS)
     Route: 065
  2. PREDNISONE [Suspect]
     Active Substance: PREDNISONE
     Dosage: 50 MILLIGRAM, (TAPER)
     Route: 048
  3. SOLU-MEDROL [Concomitant]
     Active Substance: METHYLPREDNISOLONE SODIUM SUCCINATE
     Indication: Eosinophilic pneumonia acute
     Dosage: 60 MILLIGRAM, TID
     Route: 040
  4. SOLU-MEDROL [Concomitant]
     Active Substance: METHYLPREDNISOLONE SODIUM SUCCINATE
     Dosage: 60 MILLIGRAM, BID
     Route: 040
  5. FUROSEMIDE [Concomitant]
     Active Substance: FUROSEMIDE
     Indication: Eosinophilic pneumonia acute
     Dosage: 60 MILLIGRAM, BID
     Route: 040
  6. VIVITROL [Concomitant]
     Active Substance: NALTREXONE
     Indication: Alcohol use disorder
     Route: 040
  7. AZITHROMYCIN [Concomitant]
     Active Substance: AZITHROMYCIN
     Indication: Evidence based treatment
  8. CEFTRIAXONE [Concomitant]
     Active Substance: CEFTRIAXONE
     Indication: Evidence based treatment

REACTIONS (5)
  - Death [Fatal]
  - Respiratory failure [Unknown]
  - Generalised tonic-clonic seizure [Unknown]
  - Aspiration [Unknown]
  - Alcohol use disorder [Unknown]
